FAERS Safety Report 15208995 (Version 1)
Quarter: 2018Q3

REPORT INFORMATION
  Report Type: Spontaneous
  Country: US (occurrence: US)
  Receive Date: 20180727
  Receipt Date: 20180727
  Transmission Date: 20181010
  Serious: Yes (Other)
  Sender: FDA-Public Use
  Company Number: US-ASTRAZENECA-2018SE93889

PATIENT
  Age: 74 Year
  Sex: Female
  Weight: 68.9 kg

DRUGS (19)
  1. METOPROLOL SUCCINATE. [Suspect]
     Active Substance: METOPROLOL SUCCINATE
     Route: 048
  2. GLYCERYL TRINITRATE [Concomitant]
     Active Substance: NITROGLYCERIN
  3. PULMICORT TURBUHALER [Suspect]
     Active Substance: BUDESONIDE
     Indication: CHRONIC OBSTRUCTIVE PULMONARY DISEASE
     Route: 055
  4. ALBUTEROL. [Concomitant]
     Active Substance: ALBUTEROL
  5. FUROSEMIDE. [Concomitant]
     Active Substance: FUROSEMIDE
  6. GABAPENTIN. [Concomitant]
     Active Substance: GABAPENTIN
  7. BROVANA [Suspect]
     Active Substance: ARFORMOTEROL TARTRATE
     Indication: ASTHMA
     Dosage: 15UG/2 ML, TWO TIMES A DAY
     Route: 065
     Dates: start: 2010
  8. DILTIAZEM HYDROCHLORIDE. [Concomitant]
     Active Substance: DILTIAZEM HYDROCHLORIDE
  9. XANAX [Concomitant]
     Active Substance: ALPRAZOLAM
     Dates: start: 2003
  10. NEXIUM [Suspect]
     Active Substance: ESOMEPRAZOLE MAGNESIUM
     Route: 048
  11. BROVANA [Suspect]
     Active Substance: ARFORMOTEROL TARTRATE
     Indication: CHRONIC OBSTRUCTIVE PULMONARY DISEASE
     Dosage: 15UG/2 ML, TWO TIMES A DAY
     Route: 065
     Dates: start: 2010
  12. PROAIR HFA [Concomitant]
     Active Substance: ALBUTEROL SULFATE
  13. ATORVASTATIN [Concomitant]
     Active Substance: ATORVASTATIN
  14. ALLEGRA [Concomitant]
     Active Substance: FEXOFENADINE HYDROCHLORIDE
  15. OXYGEN. [Concomitant]
     Active Substance: OXYGEN
  16. PULMICORT TURBUHALER [Suspect]
     Active Substance: BUDESONIDE
     Indication: ASTHMA
     Route: 055
  17. BROVANA [Suspect]
     Active Substance: ARFORMOTEROL TARTRATE
     Indication: SARCOIDOSIS
     Dosage: 15UG/2 ML, TWO TIMES A DAY
     Route: 065
     Dates: start: 2010
  18. PLAVIX [Concomitant]
     Active Substance: CLOPIDOGREL BISULFATE
  19. GLYCOPYRROLATE. [Concomitant]
     Active Substance: GLYCOPYRROLATE
     Dates: start: 20180105

REACTIONS (12)
  - Pneumonia [Unknown]
  - Hypercapnia [Unknown]
  - Eye irritation [Unknown]
  - Myocardial infarction [Unknown]
  - Cataract [Unknown]
  - Influenza [Unknown]
  - Weight decreased [Unknown]
  - Memory impairment [Unknown]
  - Kidney infection [Unknown]
  - Brain hypoxia [Unknown]
  - Sarcoidosis [Unknown]
  - Malaise [Unknown]

NARRATIVE: CASE EVENT DATE: 201712
